FAERS Safety Report 4439243-X (Version None)
Quarter: 2004Q3

REPORT INFORMATION
  Report Type: 
  Country: None (occurrence: None)
  Receive Date: 20040831
  Receipt Date: 20040824
  Transmission Date: 20050211
  Serious: Yes (Hospitalization, Disabling)
  Sender: FDA-Public Use
  Company Number: 20040800379

PATIENT
  Sex: Female

DRUGS (1)
  1. REGLAN [Suspect]
     Dates: start: 20020816

REACTIONS (1)
  - INJURY [None]
